FAERS Safety Report 5599447-X (Version None)
Quarter: 2008Q1

REPORT INFORMATION
  Report Type: 
  Country: None (occurrence: None)
  Receive Date: 20080122
  Receipt Date: 20080115
  Transmission Date: 20080703
  Serious: Yes (Death, Hospitalization)
  Sender: FDA-Public Use
  Company Number: CZ-PFIZER INC-2008004526

PATIENT
  Age: 70 Year
  Sex: Female

DRUGS (2)
  1. MEDROL [Suspect]
     Indication: KERATITIS
  2. CYCLOPHOSPHAMIDE [Concomitant]

REACTIONS (1)
  - DEATH [None]
